FAERS Safety Report 5911555-X (Version None)
Quarter: 2008Q4

REPORT INFORMATION
  Report Type: 
  Country: None (occurrence: None)
  Receive Date: 20081003
  Receipt Date: 20080924
  Transmission Date: 20090506
  Serious: Yes (Hospitalization)
  Sender: FDA-Public Use
  Company Number: 2008BI011238

PATIENT
  Age: 56 Year
  Sex: Female

DRUGS (3)
  1. AVONEX [Suspect]
     Indication: MULTIPLE SCLEROSIS
     Dosage: 30 UG;QW;IM 30 UG;QW;IM 30;QW;IM
     Route: 030
     Dates: start: 19990601, end: 20030101
  2. AVONEX [Suspect]
     Indication: MULTIPLE SCLEROSIS
     Dosage: 30 UG;QW;IM 30 UG;QW;IM 30;QW;IM
     Route: 030
     Dates: start: 20030101, end: 20040101
  3. AVONEX [Suspect]
     Indication: MULTIPLE SCLEROSIS
     Dosage: 30 UG;QW;IM 30 UG;QW;IM 30;QW;IM
     Route: 030
     Dates: start: 20040101

REACTIONS (1)
  - BENIGN UTERINE NEOPLASM [None]
